FAERS Safety Report 6815298-X (Version None)
Quarter: 2010Q3

REPORT INFORMATION
  Report Type: 
  Country: None (occurrence: None)
  Receive Date: 20100701
  Receipt Date: 20100701
  Transmission Date: 20110219
  Serious: Yes (Hospitalization)
  Sender: FDA-Public Use
  Company Number: None

PATIENT
  Sex: Male
  Weight: 70.3075 kg

DRUGS (2)
  1. SULFAMETHOXAZOLE AND TRIMETHOPRIM [Suspect]
     Indication: ARTHROPOD BITE
     Dosage: 800MG/160MG TWICE DAILY PO
     Route: 048
     Dates: start: 20100525, end: 20100604
  2. SULFAMETHOXAZOLE AND TRIMETHOPRIM [Suspect]
     Indication: SKIN LESION
     Dosage: 800MG/160MG TWICE DAILY PO
     Route: 048
     Dates: start: 20100525, end: 20100604

REACTIONS (1)
  - STEVENS-JOHNSON SYNDROME [None]
